FAERS Safety Report 6386575-4 (Version None)
Quarter: 2009Q4

REPORT INFORMATION
  Report Type: 
  Country: None (occurrence: None)
  Receive Date: 20091002
  Receipt Date: 20090402
  Transmission Date: 20100525
  Serious: No
  Sender: FDA-Public Use
  Company Number: US-ASTRAZENECA-2009UW08368

PATIENT
  Age: 58 Year
  Sex: Female
  Weight: 56.2 kg

DRUGS (4)
  1. ARIMIDEX [Suspect]
     Indication: BREAST CANCER FEMALE
     Route: 048
     Dates: start: 20080101
  2. ZOLOFT [Concomitant]
     Indication: DEPRESSION
  3. FOSAMAX [Concomitant]
     Indication: OSTEOPOROSIS
  4. FLEXERIL [Concomitant]
     Indication: MUSCLE SPASMS

REACTIONS (12)
  - ARTHRALGIA [None]
  - ASTHENIA [None]
  - DEPRESSION [None]
  - HEADACHE [None]
  - MYALGIA [None]
  - OROPHARYNGEAL PAIN [None]
  - OSTEOPOROSIS [None]
  - PAIN [None]
  - RASH [None]
  - SINUSITIS [None]
  - WEIGHT INCREASED [None]
  - WEIGHT LOSS POOR [None]
